FAERS Safety Report 7533957-0 (Version None)
Quarter: 2011Q2

REPORT INFORMATION
  Report Type: 
  Country: None (occurrence: None)
  Receive Date: 20110608
  Receipt Date: 20060626
  Transmission Date: 20111010
  Serious: Yes (Death)
  Sender: FDA-Public Use
  Company Number: PHMT2006CA00792

PATIENT
  Sex: Male

DRUGS (2)
  1. CLOZAPINE [Suspect]
     Dosage: UNK
     Route: 048
     Dates: start: 19960102, end: 20060201
  2. ALCOHOL [Concomitant]
     Dosage: UNK

REACTIONS (2)
  - ASPIRATION [None]
  - ALCOHOL POISONING [None]
